FAERS Safety Report 9349897 (Version 2)
Quarter: 2013Q2

REPORT INFORMATION
  Report Type: Spontaneous
  Country: MX (occurrence: MX)
  Receive Date: 20130614
  Receipt Date: 20130626
  Transmission Date: 20140414
  Serious: Yes (Other)
  Sender: FDA-Public Use
  Company Number: PHHY2013MX059105

PATIENT
  Age: 80 Year
  Sex: Female

DRUGS (1)
  1. AMLODIPINE [Suspect]
     Indication: HYPERTENSION
     Dates: start: 2006

REACTIONS (11)
  - Toxic skin eruption [Recovering/Resolving]
  - Pelvic pain [Recovering/Resolving]
  - Skin plaque [Recovering/Resolving]
  - Lymphoedema [Recovering/Resolving]
  - Dermatitis [Recovering/Resolving]
  - Pyrexia [Recovering/Resolving]
  - Discomfort [Recovering/Resolving]
  - Skin lesion [Recovering/Resolving]
  - Eczema [Recovering/Resolving]
  - Photodermatosis [Recovering/Resolving]
  - Scab [Recovering/Resolving]
